FAERS Safety Report 6968796-2 (Version None)
Quarter: 2010Q3

REPORT INFORMATION
  Report Type: 
  Country: None (occurrence: None)
  Receive Date: 20100823
  Receipt Date: 20100622
  Transmission Date: 20110219
  Serious: No
  Sender: FDA-Public Use
  Company Number: 012669

PATIENT
  Sex: Female
  Weight: 65.4 kg

DRUGS (8)
  1. CIMZIA [Suspect]
     Indication: CROHN'S DISEASE
     Dosage: (SUBCUTANEOUS)
     Route: 058
     Dates: start: 20100222
  2. BEROCCA PLUS /01327001/ [Concomitant]
  3. PREDNISONE [Concomitant]
  4. TEGRETOL [Concomitant]
  5. CENESTIN [Concomitant]
  6. AMITRIPTYLINE HCL [Concomitant]
  7. FERGON [Concomitant]
  8. VITAMIN D [Concomitant]

REACTIONS (5)
  - ANORECTAL DISCOMFORT [None]
  - OEDEMA PERIPHERAL [None]
  - POVERTY OF SPEECH [None]
  - RECTAL DISCHARGE [None]
  - VAGINAL ODOUR [None]
